FAERS Safety Report 10206672 (Version 1)
Quarter: 2014Q2

REPORT INFORMATION
  Report Type: Spontaneous
  Country: US (occurrence: US)
  Receive Date: 20140530
  Receipt Date: 20140530
  Transmission Date: 20141212
  Serious: Yes (Other)
  Sender: FDA-Public Use
  Company Number: US-PFIZER INC-2014148631

PATIENT
  Age: 78 Year
  Sex: Male
  Weight: 74.83 kg

DRUGS (9)
  1. LYRICA [Suspect]
     Indication: NEURALGIA
     Dosage: 25 MG, DAILY
     Dates: start: 201404, end: 201404
  2. LYRICA [Suspect]
     Dosage: 50 MG, DAILY
     Dates: start: 201404, end: 201404
  3. LYRICA [Suspect]
     Dosage: 75 MG, DAILY
     Dates: start: 201404, end: 2014
  4. LYRICA [Suspect]
     Dosage: UNK
     Dates: start: 2014, end: 201405
  5. TOPROL XL [Concomitant]
     Dosage: 50 MG, 2X/DAY
  6. ALLOPURINOL [Concomitant]
     Dosage: 300 MG, DAILY
  7. EPLERENONE [Concomitant]
     Dosage: 25 MG, DAILY
  8. FUROSEMIDE [Concomitant]
     Dosage: 20 MG, DAILY
  9. TRAMADOL [Concomitant]
     Indication: PAIN
     Dosage: UNK

REACTIONS (8)
  - Aphagia [Not Recovered/Not Resolved]
  - Depression [Not Recovered/Not Resolved]
  - Asthenia [Not Recovered/Not Resolved]
  - Insomnia [Not Recovered/Not Resolved]
  - Night sweats [Not Recovered/Not Resolved]
  - Headache [Not Recovered/Not Resolved]
  - Fatigue [Not Recovered/Not Resolved]
  - Weight decreased [Not Recovered/Not Resolved]
